FAERS Safety Report 20690134 (Version 3)
Quarter: 2022Q2

REPORT INFORMATION
  Report Type: Spontaneous
  Country: US (occurrence: None)
  Receive Date: 20220408
  Receipt Date: 20220610
  Transmission Date: 20220721
  Serious: Yes (Other)
  Sender: FDA-Public Use
  Company Number: 2022A137516

PATIENT
  Age: 64 Year
  Sex: Male
  Weight: 124.7 kg

DRUGS (1)
  1. BYETTA [Suspect]
     Active Substance: EXENATIDE
     Indication: Type 2 diabetes mellitus
     Route: 058
     Dates: start: 2007

REACTIONS (11)
  - Dysphonia [Not Recovered/Not Resolved]
  - Follicular lymphoma [Recovered/Resolved]
  - Decreased appetite [Recovering/Resolving]
  - Weight fluctuation [Not Recovered/Not Resolved]
  - Blood glucose increased [Not Recovered/Not Resolved]
  - Paraesthesia [Not Recovered/Not Resolved]
  - Nasopharyngitis [Not Recovered/Not Resolved]
  - Device use issue [Recovered/Resolved]
  - Incorrect dose administered by device [Unknown]
  - Device breakage [Unknown]
  - Device malfunction [Unknown]

NARRATIVE: CASE EVENT DATE: 20170101
